APPROVED DRUG PRODUCT: SOMOPHYLLIN-CRT
Active Ingredient: THEOPHYLLINE
Strength: 100MG
Dosage Form/Route: CAPSULE, EXTENDED RELEASE;ORAL
Application: A087194 | Product #001
Applicant: DM GRAHAM LABORATORIES INC
Approved: Approved Prior to Jan 1, 1982 | RLD: No | RS: No | Type: DISCN